FAERS Safety Report 4416250-4 (Version None)
Quarter: 2004Q3

REPORT INFORMATION
  Report Type: 
  Country: None (occurrence: None)
  Receive Date: 20040804
  Receipt Date: 20040804
  Transmission Date: 20050211
  Serious: Yes (Hospitalization)
  Sender: FDA-Public Use
  Company Number: None

PATIENT
  Age: 65 Year
  Sex: Female
  Weight: 50 kg

DRUGS (3)
  1. EPTIFIBITIDE (8 CC/HR X 18 H) [Suspect]
     Indication: CORONARY ARTERY DISEASE
     Dosage: 9 MG BOLUS
     Route: 040
     Dates: start: 20030929
  2. ASPIRIN [Concomitant]
  3. PLAVIX [Concomitant]

REACTIONS (3)
  - HAEMATOCRIT DECREASED [None]
  - POST PROCEDURAL HAEMATOMA [None]
  - RETROPERITONEAL HAEMATOMA [None]
